FAERS Safety Report 6631621-3 (Version None)
Quarter: 2010Q1

REPORT INFORMATION
  Report Type: 
  Country: None (occurrence: None)
  Receive Date: 20100312
  Receipt Date: 20100303
  Transmission Date: 20100710
  Serious: Yes (Other)
  Sender: FDA-Public Use
  Company Number: JP-PFIZER INC-2010027404

PATIENT
  Age: 75 Year
  Sex: Female

DRUGS (9)
  1. LIPITOR [Suspect]
     Dosage: 5 MG, UNK
     Route: 048
  2. VESICARE [Suspect]
     Dosage: 5 MG, UNK
     Route: 048
  3. MYSLEE [Suspect]
     Dosage: UNK
     Route: 048
  4. DEPROMEL [Concomitant]
     Dosage: UNK
     Route: 048
  5. MENITAZINE [Concomitant]
     Dosage: UNK
     Route: 048
  6. NORVASC [Concomitant]
     Dosage: UNK
  7. VALSARTAN [Concomitant]
     Dosage: UNK
     Route: 048
  8. FERROMIA [Concomitant]
     Dosage: UNK
     Route: 048
  9. CARDENALIN [Concomitant]
     Dosage: UNK
     Route: 048

REACTIONS (1)
  - TREMOR [None]
